FAERS Safety Report 16465096 (Version 1)
Quarter: 2019Q2

REPORT INFORMATION
  Report Type: Report from Study
  Country: US (occurrence: US)
  Receive Date: 20190621
  Receipt Date: 20190621
  Transmission Date: 20190711
  Serious: Yes (Hospitalization)
  Sender: FDA-Public Use
  Company Number: US-HLSUS-2019-US-000522

PATIENT
  Sex: 0

DRUGS (1)
  1. CLOZARIL [Suspect]
     Active Substance: CLOZAPINE
     Route: 048

REACTIONS (3)
  - Schizophrenia [Unknown]
  - Obesity [Unknown]
  - Bipolar disorder [Unknown]
